FAERS Safety Report 5167367-0 (Version None)
Quarter: 2006Q4

REPORT INFORMATION
  Report Type: 
  Country: None (occurrence: None)
  Receive Date: 20061130
  Receipt Date: 20061117
  Transmission Date: 20070319
  Serious: Yes (Death)
  Sender: FDA-Public Use
  Company Number: 2006144102

PATIENT
  Age: 45 Year
  Sex: Female
  Weight: 45 kg

DRUGS (6)
  1. ZYVOX [Suspect]
     Indication: ENTEROCOCCAL INFECTION
     Dosage: INTRAVENOUS
     Route: 042
     Dates: start: 20060515, end: 20060529
  2. ZYVOX [Suspect]
     Indication: PNEUMONIA
     Dosage: INTRAVENOUS
     Route: 042
     Dates: start: 20060515, end: 20060529
  3. MEROPEN (MEROPENEM) [Concomitant]
  4. AMPHOTERICIN B [Concomitant]
  5. ALL OTHER THERAPEUTIC PRODUCTS (ALL OTHER THERAPEUTIC PRODUCTS) [Concomitant]
  6. AZACTAM [Concomitant]

REACTIONS (1)
  - DEATH [None]
